FAERS Safety Report 14786767 (Version 10)
Quarter: 2021Q2

REPORT INFORMATION
  Report Type: Spontaneous
  Country: US (occurrence: US)
  Receive Date: 20180420
  Receipt Date: 20210430
  Transmission Date: 20210716
  Serious: Yes (Hospitalization, Other)
  Sender: FDA-Public Use
  Company Number: US-VIFOR (INTERNATIONAL) INC.-VIT-2018-03607

PATIENT
  Age: 71 Year
  Sex: Male

DRUGS (15)
  1. VELTASSA [Suspect]
     Active Substance: PATIROMER
     Route: 048
  2. CARVEDILOL. [Concomitant]
     Active Substance: CARVEDILOL
  3. METRONIDAZOLE. [Concomitant]
     Active Substance: METRONIDAZOLE
  4. SPIRONOLACTONE. [Concomitant]
     Active Substance: SPIRONOLACTONE
  5. TORSEMIDE. [Concomitant]
     Active Substance: TORSEMIDE
  6. NOVOLOG [Concomitant]
     Active Substance: INSULIN ASPART
     Dosage: 70/30
  7. GABAPENTIN. [Concomitant]
     Active Substance: GABAPENTIN
  8. VELTASSA [Suspect]
     Active Substance: PATIROMER
     Route: 048
     Dates: start: 20180405
  9. FINASTERIDE. [Concomitant]
     Active Substance: FINASTERIDE
  10. VELTASSA [Suspect]
     Active Substance: PATIROMER
     Indication: HYPERKALAEMIA
     Route: 048
     Dates: start: 20180412
  11. BENAZEPRIL HCL [Concomitant]
     Active Substance: BENAZEPRIL HYDROCHLORIDE
  12. ATORVASTATIN CALCIUM. [Concomitant]
     Active Substance: ATORVASTATIN CALCIUM
  13. GLIPIZIDE. [Concomitant]
     Active Substance: GLIPIZIDE
  14. VELTASSA [Suspect]
     Active Substance: PATIROMER
     Route: 048
  15. DOXAZOSIN MESYLATE. [Concomitant]
     Active Substance: DOXAZOSIN MESYLATE

REACTIONS (11)
  - Prostatitis [Unknown]
  - Breast pain [Not Recovered/Not Resolved]
  - Product use issue [Unknown]
  - Malaise [Unknown]
  - Diarrhoea [Not Recovered/Not Resolved]
  - Prostatic operation [Unknown]
  - Breast swelling [Not Recovered/Not Resolved]
  - Throat irritation [Unknown]
  - Product dose omission issue [Unknown]
  - Abdominal pain upper [Unknown]
  - Off label use [Not Recovered/Not Resolved]

NARRATIVE: CASE EVENT DATE: 2018
